FAERS Safety Report 8450058 (Version 4)
Quarter: 2012Q4

REPORT INFORMATION
  Report Type: 
  Country: DE (occurrence: DE)
  Receive Date: 20120309
  Receipt Date: 20121004
  Transmission Date: 20130627
  Serious: Yes (Hospitalization, Other)
  Sender: FDA-Public Use
  Company Number: DE-JNJFOC-20120301123

PATIENT
  Age: 34 Year
  Sex: Male
  Weight: 98 kg

DRUGS (3)
  1. STELARA [Suspect]
     Indication: PSORIASIS
     Route: 058
     Dates: start: 20100428, end: 20120501
  2. PANTOZOL [Concomitant]
     Indication: GASTRITIS
     Route: 048
     Dates: start: 20120503
  3. AMITRIPTYLIN [Concomitant]
     Indication: DEPRESSION
     Route: 048

REACTIONS (14)
  - Loss of consciousness [Recovered/Resolved]
  - Anxiety disorder [Unknown]
  - Diarrhoea [Recovering/Resolving]
  - Pneumonia [Recovered/Resolved]
  - Abdominal pain [Recovering/Resolving]
  - Heart rate increased [Recovered/Resolved]
  - Dizziness [Recovered/Resolved]
  - Bronchial hyperreactivity [Unknown]
  - Vertigo [Unknown]
  - Chest discomfort [Recovered/Resolved]
  - Infection [Recovered/Resolved]
  - Eating disorder [Unknown]
  - Dyspnoea [Recovered/Resolved]
  - Gastritis [Unknown]
